FAERS Safety Report 25387857 (Version 2)
Quarter: 2025Q2

REPORT INFORMATION
  Report Type: Spontaneous
  Country: DE (occurrence: DE)
  Receive Date: 20250603
  Receipt Date: 20250610
  Transmission Date: 20250717
  Serious: Yes (Life-Threatening, Hospitalization, Other)
  Sender: SANDOZ
  Company Number: DE-ROCHE-2636424

PATIENT
  Age: 34 Week
  Sex: Male
  Weight: 1.97 kg

DRUGS (45)
  1. CYCLOPHOSPHAMIDE [Suspect]
     Active Substance: CYCLOPHOSPHAMIDE
     Indication: Product used for unknown indication
     Route: 064
  2. CYCLOPHOSPHAMIDE [Suspect]
     Active Substance: CYCLOPHOSPHAMIDE
     Route: 064
  3. CYCLOPHOSPHAMIDE [Suspect]
     Active Substance: CYCLOPHOSPHAMIDE
     Route: 064
  4. CYCLOPHOSPHAMIDE [Suspect]
     Active Substance: CYCLOPHOSPHAMIDE
     Indication: Foetal exposure during pregnancy
     Route: 064
  5. CYCLOPHOSPHAMIDE [Suspect]
     Active Substance: CYCLOPHOSPHAMIDE
     Route: 064
  6. CYTARABINE [Suspect]
     Active Substance: CYTARABINE
     Indication: Product used for unknown indication
     Route: 064
  7. CYTARABINE [Suspect]
     Active Substance: CYTARABINE
     Route: 064
  8. CYTARABINE [Suspect]
     Active Substance: CYTARABINE
     Route: 064
  9. CYTARABINE [Suspect]
     Active Substance: CYTARABINE
     Route: 064
  10. CYTARABINE [Suspect]
     Active Substance: CYTARABINE
     Route: 064
  11. CYTARABINE [Suspect]
     Active Substance: CYTARABINE
     Route: 064
  12. DECADRON (DEXAMETHASONE SODIUM PHOSPHATE) [Suspect]
     Active Substance: DEXAMETHASONE SODIUM PHOSPHATE
     Indication: Foetal exposure during pregnancy
     Route: 064
  13. DECADRON (DEXAMETHASONE SODIUM PHOSPHATE) [Suspect]
     Active Substance: DEXAMETHASONE SODIUM PHOSPHATE
     Indication: Burkitt^s lymphoma stage IV
     Route: 064
  14. DOXORUBICIN [Suspect]
     Active Substance: DOXORUBICIN
     Indication: Product used for unknown indication
     Route: 064
  15. DOXORUBICIN [Suspect]
     Active Substance: DOXORUBICIN
     Route: 064
  16. DOXORUBICIN [Suspect]
     Active Substance: DOXORUBICIN
     Route: 064
  17. DOXORUBICIN [Suspect]
     Active Substance: DOXORUBICIN
     Indication: Foetal exposure during pregnancy
     Route: 064
  18. DOXORUBICIN [Suspect]
     Active Substance: DOXORUBICIN
     Route: 064
  19. ETOPOSIDE [Suspect]
     Active Substance: ETOPOSIDE
     Route: 064
  20. ETOPOSIDE [Suspect]
     Active Substance: ETOPOSIDE
     Route: 064
  21. ETOPOSIDE [Suspect]
     Active Substance: ETOPOSIDE
     Route: 064
  22. ETOPOSIDE [Suspect]
     Active Substance: ETOPOSIDE
     Indication: Foetal exposure during pregnancy
     Route: 064
  23. ETOPOSIDE [Suspect]
     Active Substance: ETOPOSIDE
     Indication: Product used for unknown indication
     Route: 064
  24. ETOPOSIDE [Suspect]
     Active Substance: ETOPOSIDE
     Route: 064
  25. FILGRASTIM [Suspect]
     Active Substance: FILGRASTIM
     Indication: Foetal exposure during pregnancy
     Dosage: 10 MICROGRAM/KILOGRAM/DAY ON DAYS 6-11
     Route: 064
  26. FILGRASTIM [Suspect]
     Active Substance: FILGRASTIM
     Indication: Product used for unknown indication
  27. MESNA [Suspect]
     Active Substance: MESNA
     Indication: Foetal exposure during pregnancy
     Route: 064
  28. MESNA [Suspect]
     Active Substance: MESNA
     Indication: Product used for unknown indication
  29. PREDNISOLONE [Suspect]
     Active Substance: PREDNISOLONE
     Route: 064
  30. PREDNISOLONE [Suspect]
     Active Substance: PREDNISOLONE
     Route: 064
  31. PREDNISOLONE [Suspect]
     Active Substance: PREDNISOLONE
     Indication: Product used for unknown indication
     Route: 064
  32. PREDNISOLONE [Suspect]
     Active Substance: PREDNISOLONE
     Route: 064
  33. PREDNISOLONE [Suspect]
     Active Substance: PREDNISOLONE
     Indication: Foetal exposure during pregnancy
     Route: 064
  34. PREDNISOLONE [Suspect]
     Active Substance: PREDNISOLONE
     Route: 064
  35. RITUXIMAB [Suspect]
     Active Substance: RITUXIMAB
     Route: 064
  36. RITUXIMAB [Suspect]
     Active Substance: RITUXIMAB
     Route: 064
  37. RITUXIMAB [Suspect]
     Active Substance: RITUXIMAB
     Indication: Foetal exposure during pregnancy
     Route: 064
  38. RITUXIMAB [Suspect]
     Active Substance: RITUXIMAB
     Route: 064
  39. RITUXIMAB [Suspect]
     Active Substance: RITUXIMAB
     Route: 064
  40. VINCRISTINE [Suspect]
     Active Substance: VINCRISTINE
     Indication: Foetal exposure during pregnancy
     Route: 064
  41. VINCRISTINE [Suspect]
     Active Substance: VINCRISTINE
     Route: 064
  42. VINCRISTINE [Suspect]
     Active Substance: VINCRISTINE
     Route: 064
  43. VINCRISTINE [Suspect]
     Active Substance: VINCRISTINE
     Indication: Product used for unknown indication
     Route: 064
  44. VINCRISTINE [Suspect]
     Active Substance: VINCRISTINE
     Route: 064
  45. VINCRISTINE [Suspect]
     Active Substance: VINCRISTINE
     Route: 064

REACTIONS (11)
  - Foetal growth restriction [Unknown]
  - Premature baby [Unknown]
  - Low birth weight baby [Recovered/Resolved]
  - Small for dates baby [Unknown]
  - Bacterial infection [Recovered/Resolved]
  - Hypogammaglobulinaemia [Not Recovered/Not Resolved]
  - Infection [Recovered/Resolved]
  - Vaccine induced antibody absent [Unknown]
  - Plasmablast count increased [Unknown]
  - B-lymphocyte count decreased [Not Recovered/Not Resolved]
  - Foetal exposure during pregnancy [Unknown]
